FAERS Safety Report 10197959 (Version 2)
Quarter: 2014Q2

REPORT INFORMATION
  Report Type: Spontaneous
  Country: US (occurrence: FR)
  Receive Date: 20140527
  Receipt Date: 20140605
  Transmission Date: 20141212
  Serious: Yes (Life-Threatening, Other)
  Sender: FDA-Public Use
  Company Number: 2014SP002870

PATIENT
  Age: 63 Year
  Sex: Male

DRUGS (13)
  1. VANCOMYCIN [Suspect]
     Indication: STAPHYLOCOCCAL INFECTION
     Route: 042
     Dates: start: 20140315, end: 20140318
  2. VANCOMYCIN [Suspect]
     Indication: STAPHYLOCOCCAL INFECTION
     Route: 042
     Dates: start: 20140320, end: 20140405
  3. CIPROFLOXACIN [Suspect]
     Indication: STAPHYLOCOCCAL INFECTION
     Route: 048
     Dates: start: 20140317, end: 20140411
  4. ALPRAZOLAM [Suspect]
     Indication: PRODUCT USED FOR UNKNOWN INDICATION
     Route: 048
     Dates: start: 20140330, end: 20140411
  5. ESOMEPRAZOLE MAGNESIUM [Suspect]
     Indication: PRODUCT USED FOR UNKNOWN INDICATION
     Route: 048
     Dates: start: 20140303, end: 20140411
  6. AMOXI-CLAVULANICO [Concomitant]
     Dates: start: 20140308, end: 20140317
  7. METRONIDAZOLE [Concomitant]
     Dates: start: 20140407, end: 20140411
  8. ZOPICLONE [Concomitant]
     Dates: end: 20140325
  9. ENOXAPARIN SODIUM [Concomitant]
     Dates: start: 20140303
  10. NEFOPAM HYDROCHLORIDE [Concomitant]
     Dates: start: 201401, end: 20140318
  11. AMINO ACIDS NOS W/ELECTROLYTES NOS/FATS NOS/G [Concomitant]
     Dates: start: 20140303, end: 20140411
  12. POTASSIUM CHLORIDE [Concomitant]
     Dates: start: 20140303, end: 20140411
  13. DOMPERIDONE [Concomitant]
     Dates: start: 20140303, end: 20140411

REACTIONS (17)
  - Multi-organ failure [Recovering/Resolving]
  - Cardiogenic shock [Recovering/Resolving]
  - Tachycardia [Unknown]
  - Haemodynamic instability [Recovering/Resolving]
  - Hypokalaemia [Unknown]
  - Atrial fibrillation [Unknown]
  - Hypotension [Unknown]
  - Hepatocellular injury [Recovering/Resolving]
  - Cholestasis [Recovering/Resolving]
  - Drug reaction with eosinophilia and systemic symptoms [Recovering/Resolving]
  - Rash [Recovering/Resolving]
  - Pyrexia [Unknown]
  - Lymphadenopathy [Unknown]
  - Lichenoid keratosis [Unknown]
  - Drug eruption [Unknown]
  - Renal impairment [Unknown]
  - Liver function test abnormal [Unknown]
